FAERS Safety Report 5730747-6 (Version None)
Quarter: 2008Q2

REPORT INFORMATION
  Report Type: 
  Country: None (occurrence: None)
  Receive Date: 20080507
  Receipt Date: 20080428
  Transmission Date: 20081010
  Serious: Yes (Other)
  Sender: FDA-Public Use
  Company Number: US-JNJFOC-20080407180

PATIENT
  Sex: Female
  Weight: 53.98 kg

DRUGS (19)
  1. INVEGA [Suspect]
     Indication: BORDERLINE PERSONALITY DISORDER
     Route: 048
  2. INVEGA [Suspect]
     Indication: AFFECTIVE DISORDER
     Route: 048
  3. MOTRIN [Concomitant]
     Indication: BACK PAIN
  4. ZOLOFT [Concomitant]
     Indication: DEPRESSION
     Route: 048
  5. NEURONTIN [Concomitant]
     Indication: DRUG USE FOR UNKNOWN INDICATION
  6. DEPO-PROVERA [Concomitant]
  7. ABILIFY [Concomitant]
     Route: 048
  8. ABILIFY [Concomitant]
     Route: 048
  9. ABILIFY [Concomitant]
     Indication: DRUG USE FOR UNKNOWN INDICATION
     Route: 048
  10. GEODON [Concomitant]
     Route: 048
  11. GEODON [Concomitant]
     Route: 048
  12. GEODON [Concomitant]
     Route: 048
  13. GEODON [Concomitant]
     Route: 048
  14. GEODON [Concomitant]
     Route: 048
  15. GEODON [Concomitant]
     Indication: DRUG USE FOR UNKNOWN INDICATION
     Route: 048
  16. HEPATITIS A VACCINE [Concomitant]
  17. ANTABUSE [Concomitant]
     Indication: DRUG USE FOR UNKNOWN INDICATION
     Route: 048
  18. RELAFEN [Concomitant]
     Indication: DRUG USE FOR UNKNOWN INDICATION
  19. AMOXICILLIN [Concomitant]
     Indication: DRUG USE FOR UNKNOWN INDICATION

REACTIONS (3)
  - BREAST PAIN [None]
  - GALACTORRHOEA [None]
  - HYPERPROLACTINAEMIA [None]
